FAERS Safety Report 4830528-1 (Version None)
Quarter: 2005Q4

REPORT INFORMATION
  Report Type: 
  Country: None (occurrence: None)
  Receive Date: 20051115
  Receipt Date: 20051102
  Transmission Date: 20060501
  Serious: Yes (Other)
  Sender: FDA-Public Use
  Company Number: 2005147254

PATIENT
  Age: 63 Year
  Sex: Male

DRUGS (4)
  1. VIAGRA [Suspect]
     Indication: ILL-DEFINED DISORDER
     Dates: start: 20031001, end: 20050301
  2. CIALIS [Suspect]
     Indication: ILL-DEFINED DISORDER
  3. LEVITRA [Suspect]
     Indication: ILL-DEFINED DISORDER
  4. ALLERGY MEDICATION (ALLERGY MEDICATION) [Concomitant]

REACTIONS (6)
  - AMAUROSIS FUGAX [None]
  - DIZZINESS [None]
  - RESPIRATORY DISORDER [None]
  - TRANSIENT ISCHAEMIC ATTACK [None]
  - VISION BLURRED [None]
  - VISUAL ACUITY REDUCED [None]
